FAERS Safety Report 10490050 (Version 1)
Quarter: 2014Q4

REPORT INFORMATION
  Report Type: Spontaneous
  Country: US (occurrence: US)
  Receive Date: 20141002
  Receipt Date: 20141002
  Transmission Date: 20150528
  Serious: Yes (Other)
  Sender: FDA-Public Use
  Company Number: US-MYLANLABS-2014M1005195

PATIENT

DRUGS (1)
  1. KETAMINE [Suspect]
     Active Substance: KETAMINE
     Route: 065

REACTIONS (7)
  - Contracted bladder [Unknown]
  - Bladder diverticulum [Unknown]
  - Substance use [Unknown]
  - Drug abuse [Unknown]
  - Ureteric stenosis [Unknown]
  - Cystitis [Unknown]
  - Hydronephrosis [Unknown]
